FAERS Safety Report 17284860 (Version 1)
Quarter: 2020Q1

REPORT INFORMATION
  Report Type: Report from Study
  Country: None (occurrence: US)
  Receive Date: 20200117
  Receipt Date: 20200117
  Transmission Date: 20200409
  Serious: Yes (Other)
  Sender: FDA-Public Use
  Company Number: US-ABBVIE-20P-163-3236918-00

PATIENT
  Age: 67 Year
  Sex: Female

DRUGS (1)
  1. RINVOQ [Suspect]
     Active Substance: UPADACITINIB
     Indication: PRODUCT USED FOR UNKNOWN INDICATION
     Route: 048
     Dates: end: 20200101

REACTIONS (8)
  - Lymphadenopathy [Unknown]
  - Epistaxis [Recovering/Resolving]
  - Palpitations [Not Recovered/Not Resolved]
  - Myalgia [Unknown]
  - Upper respiratory tract infection [Recovering/Resolving]
  - Sinus disorder [Recovering/Resolving]
  - Neck pain [Not Recovered/Not Resolved]
  - Lacrimation increased [Recovering/Resolving]

NARRATIVE: CASE EVENT DATE: 201911
